FAERS Safety Report 24865146 (Version 1)
Quarter: 2025Q1

REPORT INFORMATION
  Report Type: Spontaneous
  Country: GB (occurrence: GB)
  Receive Date: 20250121
  Receipt Date: 20250121
  Transmission Date: 20250408
  Serious: Yes (Other)
  Sender: AUROBINDO
  Company Number: GB-MHRA-MED-202412172146520050-CJGFM

PATIENT
  Age: 62 Year
  Sex: Female

DRUGS (1)
  1. NITROFURANTOIN [Suspect]
     Active Substance: NITROFURANTOIN
     Indication: Product used for unknown indication
     Route: 065
     Dates: start: 20241215

REACTIONS (9)
  - Disorientation [Unknown]
  - Dyspnoea [Unknown]
  - Abdominal pain upper [Unknown]
  - Lethargy [Unknown]
  - Feeling cold [Unknown]
  - Urinary tract infection [Unknown]
  - Drug hypersensitivity [Unknown]
  - Headache [Unknown]
  - Tremor [Unknown]
